FAERS Safety Report 6426959-9 (Version None)
Quarter: 2009Q4

REPORT INFORMATION
  Report Type: 
  Country: None (occurrence: None)
  Receive Date: 20091103
  Receipt Date: 20091103
  Transmission Date: 20100525
  Serious: Yes (Other)
  Sender: FDA-Public Use
  Company Number: None

PATIENT
  Age: 64 Year
  Sex: Female

DRUGS (1)
  1. IPRATROPIUM BROMIDE AND ALBUTEROL SULFATE [Suspect]
     Dosage: ADMINISTER ONE VIAL FOUR TIMES A DAY VIA NEBULIZATION

REACTIONS (2)
  - DYSPNOEA [None]
  - PRODUCT TASTE ABNORMAL [None]
